FAERS Safety Report 9383121 (Version 3)
Quarter: 2013Q3

REPORT INFORMATION
  Report Type: Spontaneous
  Country: IT (occurrence: IT)
  Receive Date: 20130704
  Receipt Date: 20130812
  Transmission Date: 20140515
  Serious: Yes (Other)
  Sender: FDA-Public Use
  Company Number: IT-RANBAXY-2013R1-70737

PATIENT
  Age: 59 Year
  Sex: Male

DRUGS (3)
  1. AMOXICILLIN [Suspect]
     Indication: TOOTH ABSCESS
     Dosage: 2 G, DAILY
     Route: 048
     Dates: start: 20130421, end: 20130421
  2. METRONIDAZOLE [Suspect]
     Indication: TOOTH ABSCESS
     Dosage: 500 MG, DAILY
     Route: 048
     Dates: start: 20130421, end: 20130421
  3. KETOPROFEN [Suspect]
     Indication: TOOTH ABSCESS
     Dosage: 200 MG, DAILY
     Route: 048
     Dates: start: 20130421, end: 20130421

REACTIONS (2)
  - Angioedema [Recovering/Resolving]
  - Dysphagia [Recovering/Resolving]
